FAERS Safety Report 6906255-3 (Version None)
Quarter: 2010Q3

REPORT INFORMATION
  Report Type: 
  Country: None (occurrence: None)
  Receive Date: 20100803
  Receipt Date: 20100803
  Transmission Date: 20110219
  Serious: No
  Sender: FDA-Public Use
  Company Number: None

PATIENT
  Age: 38 Year
  Sex: Female
  Weight: 63.5036 kg

DRUGS (3)
  1. RITE AID VAGICAINE CREAM BENZOCAINE 20%; ROSORCINOL 3% DISTED BY RITE [Suspect]
     Indication: VULVOVAGINAL MYCOTIC INFECTION
     Dosage: .10 OZ 1 X TOP
     Route: 061
     Dates: start: 20100801, end: 20100801
  2. DOXYCYCLINE [Concomitant]
  3. AMOXICILLIN [Concomitant]

REACTIONS (1)
  - APPLICATION SITE PAIN [None]
